FAERS Safety Report 13354017 (Version 1)
Quarter: 2017Q1

REPORT INFORMATION
  Report Type: Report from Study
  Country: US (occurrence: US)
  Receive Date: 20170321
  Receipt Date: 20170321
  Transmission Date: 20170429
  Serious: Yes (Hospitalization)
  Sender: FDA-Public Use
  Company Number: US-ROCHE-1908107

PATIENT
  Sex: Female
  Weight: 123.03 kg

DRUGS (33)
  1. FIORICET [Concomitant]
     Active Substance: ACETAMINOPHEN\BUTALBITAL\CAFFEINE
     Dosage: 1-2 TABLETS
     Route: 065
  2. NORCO [Concomitant]
     Active Substance: ACETAMINOPHEN\HYDROCODONE BITARTRATE
  3. IMITREX STATDOSE [Concomitant]
     Active Substance: SUMATRIPTAN SUCCINATE
  4. ARMOUR THYROID [Concomitant]
     Active Substance: THYROID, PORCINE
  5. ALBUTEROL HFA [Concomitant]
     Active Substance: ALBUTEROL SULFATE
     Dosage: INHALE 2 PUFFS IN LUNGS
     Route: 065
  6. AZELASTINE [Concomitant]
     Active Substance: AZELASTINE
     Route: 065
  7. SINGULAIR [Concomitant]
     Active Substance: MONTELUKAST SODIUM
  8. EPIPEN [Concomitant]
     Active Substance: EPINEPHRINE
  9. ALPRAZOLAM. [Concomitant]
     Active Substance: ALPRAZOLAM
     Route: 065
  10. EPINEPHRINE. [Concomitant]
     Active Substance: EPINEPHRINE
  11. NEXIUM [Concomitant]
     Active Substance: ESOMEPRAZOLE MAGNESIUM
  12. BENADRYL [Concomitant]
     Active Substance: DIPHENHYDRAMINE HYDROCHLORIDE
     Route: 042
  13. BENLYSTA [Concomitant]
     Active Substance: BELIMUMAB
     Route: 065
  14. YASMIN [Concomitant]
     Active Substance: DROSPIRENONE\ETHINYL ESTRADIOL
     Dosage: 1 TABLET DAILY
     Route: 065
  15. DULERA [Concomitant]
     Active Substance: FORMOTEROL FUMARATE DIHYDRATE\MOMETASONE FUROATE
  16. PEPCID (UNITED STATES) [Concomitant]
     Route: 048
  17. ALBUTEROL. [Concomitant]
     Active Substance: ALBUTEROL
     Dosage: 2.5MMG/3 ML, BY NEBULISATION
     Route: 065
  18. PEPCID (UNITED STATES) [Concomitant]
     Route: 048
     Dates: start: 20161031, end: 20161031
  19. LIDEX [Concomitant]
     Active Substance: FLUOCINONIDE
  20. FLUOXETINE [Concomitant]
     Active Substance: FLUOXETINE HYDROCHLORIDE
  21. FLONASE (UNITED STATES) [Concomitant]
  22. ZADITOR [Concomitant]
     Active Substance: KETOTIFEN FUMARATE
     Dosage: OPTHALMIC SOLUTION
     Route: 065
  23. VYVANSE [Concomitant]
     Active Substance: LISDEXAMFETAMINE DIMESYLATE
  24. MAXALT-MLT [Concomitant]
     Active Substance: RIZATRIPTAN BENZOATE
  25. PLAQUENIL [Concomitant]
     Active Substance: HYDROXYCHLOROQUINE SULFATE
  26. ATROVENT [Concomitant]
     Active Substance: IPRATROPIUM BROMIDE
  27. ZADITOR [Concomitant]
     Active Substance: KETOTIFEN FUMARATE
     Dosage: OPTHALMIC SOLUTION 0.025% (0.035 %)
     Route: 065
     Dates: start: 20161031
  28. ZANAFLEX [Concomitant]
     Active Substance: TIZANIDINE HYDROCHLORIDE
  29. XOLAIR [Suspect]
     Active Substance: OMALIZUMAB
     Indication: IDIOPATHIC URTICARIA
     Dosage: LAST INJECTION: 13/FEB/2017
     Route: 058
  30. VISTARIL [Concomitant]
     Active Substance: HYDROXYZINE PAMOATE
  31. RHEUMATE [Concomitant]
     Active Substance: LEVOMEFOLIC ACID\METHYLCOBALAMIN\TURMERIC
  32. VITAMIN D3 [Concomitant]
     Active Substance: CHOLECALCIFEROL
  33. BENADRYL [Concomitant]
     Active Substance: DIPHENHYDRAMINE HYDROCHLORIDE
     Route: 042

REACTIONS (2)
  - Anaphylactic reaction [Unknown]
  - Cutaneous lupus erythematosus [Unknown]
